FAERS Safety Report 22147853 (Version 1)
Quarter: 2023Q1

REPORT INFORMATION
  Report Type: Spontaneous
  Country: FR (occurrence: None)
  Receive Date: 20230328
  Receipt Date: 20230328
  Transmission Date: 20230417
  Serious: Yes (Death, Other)
  Sender: FDA-Public Use
  Company Number: 2023A072160

PATIENT
  Age: 52 Year
  Sex: Female

DRUGS (4)
  1. OSIMERTINIB [Suspect]
     Active Substance: OSIMERTINIB
     Indication: Non-small cell lung cancer
     Route: 048
  2. GEFITINIB [Suspect]
     Active Substance: GEFITINIB
     Indication: Non-small cell lung cancer
     Route: 048
  3. METHOTREXATE [Concomitant]
     Active Substance: METHOTREXATE
     Indication: Non-small cell lung cancer
     Route: 037
  4. AFATINIB [Concomitant]
     Active Substance: AFATINIB
     Dates: start: 202112

REACTIONS (8)
  - Metastases to meninges [Fatal]
  - Drug resistance [Unknown]
  - Acquired gene mutation [Unknown]
  - Intracranial pressure increased [Unknown]
  - Neurological symptom [Unknown]
  - CSF protein increased [Unknown]
  - EGFR gene mutation [Unknown]
  - TP53 gene mutation [Unknown]

NARRATIVE: CASE EVENT DATE: 20200601
